FAERS Safety Report 12377073 (Version 1)
Quarter: 2016Q2

REPORT INFORMATION
  Report Type: Report from Study
  Country: US (occurrence: US)
  Receive Date: 20160517
  Receipt Date: 20160517
  Transmission Date: 20160815
  Serious: No
  Sender: FDA-Public Use
  Company Number: US-MALLINCKRODT-T201504234

PATIENT
  Age: 56 Year
  Sex: Female
  Weight: 119 kg

DRUGS (5)
  1. PREDNISONE. [Suspect]
     Active Substance: PREDNISONE
     Indication: PRODUCT USED FOR UNKNOWN INDICATION
     Dosage: UNK DOSE/FREQUENCY
     Route: 065
  2. POTASSIUM [Concomitant]
     Active Substance: POTASSIUM
     Indication: OEDEMA
  3. LASIX [Concomitant]
     Active Substance: FUROSEMIDE
     Indication: OEDEMA
  4. VITAMIN C [Concomitant]
     Active Substance: ASCORBIC ACID
     Indication: PROMOTION OF WOUND HEALING
  5. REPOSITORY CORTICOTROPIN INJECTION [Suspect]
     Active Substance: CORTICOTROPIN
     Indication: PULMONARY SARCOIDOSIS
     Dosage: 80 UNITS EVERY 72 HRS (Q72 HRS)
     Route: 030
     Dates: start: 20150822

REACTIONS (13)
  - Neck pain [Recovered/Resolved]
  - Injection site pruritus [Recovered/Resolved]
  - Headache [Recovering/Resolving]
  - Arthralgia [Not Recovered/Not Resolved]
  - Weight increased [Not Recovered/Not Resolved]
  - Erythema [Not Recovered/Not Resolved]
  - Increased appetite [Not Recovered/Not Resolved]
  - Oedema peripheral [Recovering/Resolving]
  - Psychomotor hyperactivity [Recovered/Resolved]
  - Musculoskeletal stiffness [Recovered/Resolved]
  - Cough [Not Recovered/Not Resolved]
  - Drug ineffective [Not Recovered/Not Resolved]
  - Contusion [Not Recovered/Not Resolved]

NARRATIVE: CASE EVENT DATE: 201508
